FAERS Safety Report 6196403-8 (Version None)
Quarter: 2009Q2

REPORT INFORMATION
  Report Type: 
  Country: None (occurrence: None)
  Receive Date: 20090520
  Receipt Date: 20090518
  Transmission Date: 20091009
  Serious: Yes (Death)
  Sender: FDA-Public Use
  Company Number: US-ASTRAZENECA-2009UW12694

PATIENT
  Sex: Male
  Weight: 111.1 kg

DRUGS (2)
  1. CASODEX [Suspect]
     Route: 048
  2. DILANTIN [Concomitant]

REACTIONS (4)
  - BRAIN STEM STROKE [None]
  - DEHYDRATION [None]
  - GASTRIC ULCER HAEMORRHAGE [None]
  - HAEMORRHAGE [None]
